FAERS Safety Report 8870411 (Version 1)
Quarter: 2012Q4

REPORT INFORMATION
  Report Type: Spontaneous
  Country: US (occurrence: None)
  Receive Date: 20121026
  Receipt Date: 20121026
  Transmission Date: 20130627
  Serious: Yes (Other)
  Sender: FDA-Public Use
  Company Number: None

PATIENT
  Sex: Female

DRUGS (1)
  1. TACROLIMUS [Suspect]
     Route: 048

REACTIONS (8)
  - Nausea [None]
  - Pain [None]
  - Swelling [None]
  - Wheezing [None]
  - Insomnia [None]
  - Fatigue [None]
  - Muscle spasms [None]
  - No therapeutic response [None]
